FAERS Safety Report 8470353-6 (Version None)
Quarter: 2012Q2

REPORT INFORMATION
  Report Type: 
  Country: None (occurrence: None)
  Receive Date: 20120627
  Receipt Date: 20120621
  Transmission Date: 20120825
  Serious: No
  Sender: FDA-Public Use
  Company Number: US-PFIZER INC-2012135290

PATIENT
  Sex: Female
  Weight: 81.633 kg

DRUGS (1)
  1. PREMARIN [Suspect]
     Indication: VULVOVAGINAL DRYNESS
     Dosage: UNK, 2X/DAY
     Route: 067
     Dates: start: 20120521, end: 20120101

REACTIONS (2)
  - VULVOVAGINAL SWELLING [None]
  - VULVOVAGINAL PRURITUS [None]
